FAERS Safety Report 8119409-8 (Version None)
Quarter: 2012Q1

REPORT INFORMATION
  Report Type: 
  Country: None (occurrence: None)
  Receive Date: 20120207
  Receipt Date: 20120125
  Transmission Date: 20120608
  Serious: Yes (Hospitalization)
  Sender: FDA-Public Use
  Company Number: US-UCBSA-049546

PATIENT
  Sex: Male
  Weight: 3.18 kg

DRUGS (5)
  1. CIMZIA [Suspect]
     Indication: CROHN'S DISEASE
     Dosage: LOT NUMBER: 59322 EXP DATE: ??/NOV/2012, 61317, EXP DATE: ??/MAR/2013
     Route: 064
     Dates: start: 20110401, end: 20111101
  2. VITAMIN B-12 [Concomitant]
     Indication: ABDOMINAL OPERATION
     Dosage: AS USED: 100 CC MONTHLY
     Route: 064
     Dates: start: 20090101, end: 20111101
  3. MULTI-VITAMINS [Concomitant]
     Indication: PREGNANCY
     Route: 064
     Dates: start: 20110301, end: 20111101
  4. BIRTH CONTROL PILL [Concomitant]
     Indication: ORAL CONTRACEPTION
     Route: 064
     Dates: end: 20111101
  5. LOMOTIL [Concomitant]
     Indication: DIARRHOEA
     Route: 064
     Dates: end: 20111101

REACTIONS (2)
  - MATERNAL CONDITION AFFECTING FOETUS [None]
  - FOETAL EXPOSURE DURING PREGNANCY [None]
